FAERS Safety Report 24687520 (Version 1)
Quarter: 2024Q4

REPORT INFORMATION
  Report Type: Spontaneous
  Country: US (occurrence: US)
  Receive Date: 20241202
  Receipt Date: 20241202
  Transmission Date: 20250115
  Serious: Yes (Hospitalization)
  Sender: MYLAN
  Company Number: US-MYLANLABS-2024M1107166

PATIENT
  Age: 71 Year
  Sex: Male

DRUGS (9)
  1. APIXABAN [Suspect]
     Active Substance: APIXABAN
     Indication: Prophylaxis
     Dosage: 5 MILLIGRAM, BID
     Route: 065
  2. ASPIRIN [Suspect]
     Active Substance: ASPIRIN
     Indication: Prophylaxis
     Dosage: UNK
     Route: 065
  3. HEPARIN [Concomitant]
     Active Substance: HEPARIN SODIUM
     Indication: Anticoagulant therapy
     Dosage: DRIP
     Route: 042
  4. LAMOTRIGINE [Concomitant]
     Active Substance: LAMOTRIGINE
     Indication: Product used for unknown indication
     Dosage: UNK
     Route: 065
  5. CITALOPRAM [Concomitant]
     Active Substance: CITALOPRAM
     Indication: Product used for unknown indication
     Dosage: UNK
     Route: 065
  6. BUPROPION [Concomitant]
     Active Substance: BUPROPION
     Indication: Product used for unknown indication
     Dosage: UNK
     Route: 065
  7. FLUTICASONE [Concomitant]
     Active Substance: FLUTICASONE
     Indication: Product used for unknown indication
     Dosage: UNK, SPRAY
     Route: 045
  8. TYLENOL [Concomitant]
     Active Substance: ACETAMINOPHEN
     Indication: Pain
     Dosage: UNK
     Route: 065
  9. MORPHINE [Concomitant]
     Active Substance: MORPHINE
     Indication: Analgesic therapy
     Dosage: UNK
     Route: 065

REACTIONS (1)
  - Drug ineffective [Unknown]
